FAERS Safety Report 10030696 (Version 1)
Quarter: 2014Q1

REPORT INFORMATION
  Report Type: Spontaneous
  Country: US (occurrence: US)
  Receive Date: 20140323
  Receipt Date: 20140323
  Transmission Date: 20141002
  Serious: No
  Sender: FDA-Public Use
  Company Number: US-ALLERGAN-1320255US

PATIENT
  Sex: Male

DRUGS (1)
  1. LATISSE 0.03% [Suspect]
     Indication: PRODUCT USED FOR UNKNOWN INDICATION
     Dosage: 2 DROPS IN EYES
     Route: 047
     Dates: start: 20131229

REACTIONS (2)
  - Wrong drug administered [Unknown]
  - Photophobia [Unknown]
